FAERS Safety Report 8306174-4 (Version None)
Quarter: 2012Q2

REPORT INFORMATION
  Report Type: 
  Country: None (occurrence: None)
  Receive Date: 20120423
  Receipt Date: 20120417
  Transmission Date: 20120825
  Serious: Yes (Hospitalization, Other)
  Sender: FDA-Public Use
  Company Number: US-AMGEN-USASP2012018202

PATIENT
  Age: 69 Year
  Sex: Female
  Weight: 121.5 kg

DRUGS (5)
  1. NPLATE [Suspect]
     Indication: IDIOPATHIC THROMBOCYTOPENIC PURPURA
     Dosage: 275 MUG, QWK
     Route: 058
     Dates: start: 20101214
  2. ACETAMINOPHEN [Concomitant]
     Dosage: 650 MG, PRN
     Route: 048
  3. AMLODIPINE [Concomitant]
     Dosage: 5 MG, UNK
     Route: 048
  4. ATENOLOL [Concomitant]
     Dosage: 50 MG, UNK
     Route: 048
  5. ZANTAC [Concomitant]
     Dosage: 150 MG, UNK

REACTIONS (4)
  - PLATELET COUNT INCREASED [None]
  - PLATELET COUNT ABNORMAL [None]
  - TRANSIENT ISCHAEMIC ATTACK [None]
  - PLATELET COUNT DECREASED [None]
